FAERS Safety Report 8930355 (Version 1)
Quarter: 2012Q4

REPORT INFORMATION
  Report Type: 
  Country: JP (occurrence: JP)
  Receive Date: 20121128
  Receipt Date: 20121128
  Transmission Date: 20130627
  Serious: Yes (Hospitalization)
  Sender: FDA-Public Use
  Company Number: JP-GLAXOSMITHKLINE-B0826818A

PATIENT
  Age: 80 None
  Sex: Female

DRUGS (11)
  1. LAMICTAL [Suspect]
     Indication: DEPRESSION
     Dosage: 25MG Per day
     Route: 048
     Dates: start: 20120728, end: 20120803
  2. LAMICTAL [Suspect]
     Indication: DEPRESSION
     Dosage: 50MG Per day
     Route: 048
     Dates: start: 20120804, end: 20120809
  3. MYSLEE [Concomitant]
     Indication: INSOMNIA
     Dosage: 15MG Per day
     Route: 048
     Dates: start: 20110105
  4. LEXAPRO [Concomitant]
     Indication: DEPRESSION
     Dosage: 20MG Per day
     Route: 048
     Dates: start: 20120713
  5. LIMAS [Concomitant]
     Indication: AFFECT LABILITY
     Dosage: 300MG Per day
     Route: 048
     Dates: start: 20120531
  6. ETIZOLAM [Concomitant]
     Indication: INSOMNIA
     Dosage: .5MG Per day
     Route: 048
     Dates: start: 20110105
  7. VOGLIBOSE [Concomitant]
     Indication: DIABETES MELLITUS
     Route: 048
  8. NATEGLINIDE [Concomitant]
     Indication: DIABETES MELLITUS
     Route: 048
  9. METGLUCO [Concomitant]
     Indication: DIABETES MELLITUS
     Route: 048
  10. LIPITOR [Concomitant]
     Indication: HYPERLIPIDAEMIA
     Route: 048
  11. MAGMITT [Concomitant]
     Route: 048

REACTIONS (9)
  - Drug eruption [Recovered/Resolved]
  - Drug reaction with eosinophilia and systemic symptoms [Unknown]
  - Lip swelling [Recovered/Resolved]
  - Rash [Recovered/Resolved]
  - Rash papular [Unknown]
  - Erythema [Unknown]
  - Blood lactate dehydrogenase increased [Unknown]
  - Aspartate aminotransferase increased [Unknown]
  - Alanine aminotransferase increased [Unknown]
